FAERS Safety Report 9657352 (Version 1)
Quarter: 2013Q4

REPORT INFORMATION
  Report Type: Spontaneous
  Country: FR (occurrence: FR)
  Receive Date: 20131030
  Receipt Date: 20131030
  Transmission Date: 20140711
  Serious: Yes (Hospitalization)
  Sender: FDA-Public Use
  Company Number: FR-GLAXOSMITHKLINE-B0934726A

PATIENT
  Age: 100 Year
  Sex: Female

DRUGS (8)
  1. ARIXTRA [Suspect]
     Indication: ATRIAL FIBRILLATION
     Dosage: 7.5MG PER DAY
     Route: 058
     Dates: start: 20130813, end: 20130827
  2. LERCAN [Concomitant]
  3. CORVASAL [Concomitant]
  4. HEMIGOXINE NATIVELLE [Concomitant]
  5. LASILIX [Concomitant]
  6. KARDEGIC [Concomitant]
  7. TARDYFERON [Concomitant]
  8. PACKED RED BLOOD CELL TRANSFUSION [Concomitant]

REACTIONS (4)
  - Skin haemorrhage [Recovered/Resolved]
  - Haematoma [Unknown]
  - Condition aggravated [Unknown]
  - Off label use [Unknown]
